FAERS Safety Report 7749644-X (Version None)
Quarter: 2011Q3

REPORT INFORMATION
  Report Type: 
  Country: None (occurrence: None)
  Receive Date: 20110914
  Receipt Date: 20110902
  Transmission Date: 20111222
  Serious: Yes (Other)
  Sender: FDA-Public Use
  Company Number: US-ROCHE-573925

PATIENT
  Age: 30 Year
  Sex: Female

DRUGS (5)
  1. GLUCOPHAGE [Concomitant]
  2. NELFINAVIR MESYLATE [Suspect]
     Indication: HIV INFECTION
     Route: 048
  3. SAQUINAVIR MESILATE [Suspect]
     Indication: HIV INFECTION
     Route: 048
     Dates: start: 20080301
  4. LAMIVUDINE + ZIDOVUDINE [Suspect]
     Indication: HIV INFECTION
     Route: 048
  5. SAQUINAVIR [Suspect]
     Indication: HIV INFECTION
     Route: 048

REACTIONS (1)
  - ABORTION SPONTANEOUS [None]
